FAERS Safety Report 20700732 (Version 1)
Quarter: 2022Q2

REPORT INFORMATION
  Report Type: Spontaneous
  Country: US (occurrence: US)
  Receive Date: 20220412
  Receipt Date: 20220412
  Transmission Date: 20220721
  Serious: Yes (Death, Other)
  Sender: FDA-Public Use
  Company Number: US-BIOVITRUM-2022US04990

PATIENT

DRUGS (3)
  1. ANAKINRA [Suspect]
     Active Substance: ANAKINRA
     Indication: Hepatitis alcoholic
     Dosage: 14 DAYS
     Route: 058
  2. PENTOXIFYLLINE [Suspect]
     Active Substance: PENTOXIFYLLINE
     Dosage: FOR 28 DAYS
     Route: 048
  3. ZINC [Suspect]
     Active Substance: ZINC
     Dosage: 6 MONTHS
     Route: 048

REACTIONS (2)
  - Death [Fatal]
  - Off label use [Unknown]
